FAERS Safety Report 22540838 (Version 1)
Quarter: 2023Q2

REPORT INFORMATION
  Report Type: Spontaneous
  Country: US (occurrence: US)
  Receive Date: 20230609
  Receipt Date: 20230609
  Transmission Date: 20230721
  Serious: Yes (Other)
  Sender: FDA-Public Use
  Company Number: US-MYLANLABS-2023M1058581

PATIENT
  Age: 35 Year
  Sex: Female

DRUGS (4)
  1. EPIPEN [Suspect]
     Active Substance: EPINEPHRINE
     Indication: Headache
     Dosage: UNK
     Route: 065
     Dates: start: 20230510
  2. EPIPEN [Suspect]
     Active Substance: EPINEPHRINE
     Indication: Pharyngeal swelling
  3. EPIPEN [Suspect]
     Active Substance: EPINEPHRINE
     Indication: Throat irritation
  4. EPIPEN [Suspect]
     Active Substance: EPINEPHRINE
     Indication: Dysphonia

REACTIONS (1)
  - Drug ineffective [Unknown]
